FAERS Safety Report 13406618 (Version 1)
Quarter: 2017Q2

REPORT INFORMATION
  Report Type: Spontaneous
  Country: US (occurrence: US)
  Receive Date: 20170405
  Receipt Date: 20170405
  Transmission Date: 20170830
  Serious: No
  Sender: FDA-Public Use
  Company Number: US-SA-2016SA190852

PATIENT
  Age: 85 Year
  Sex: Female

DRUGS (1)
  1. ALLEGRA [Suspect]
     Active Substance: FEXOFENADINE HYDROCHLORIDE
     Indication: URTICARIA
     Dosage: FREQUENCY: ONCE DAILY IN MORNING. DOSE:6 TEASPOON(S)
     Route: 048

REACTIONS (2)
  - Product use issue [Unknown]
  - Pigmentation disorder [Not Recovered/Not Resolved]
